FAERS Safety Report 19165776 (Version 1)
Quarter: 2021Q2

REPORT INFORMATION
  Report Type: Report from Study
  Country: None (occurrence: US)
  Receive Date: 20210422
  Receipt Date: 20210422
  Transmission Date: 20210717
  Serious: Yes (Hospitalization)
  Sender: FDA-Public Use
  Company Number: US-ABBVIE-21K-163-3868344-00

PATIENT
  Sex: Female
  Weight: 31.33 kg

DRUGS (2)
  1. SYNTHROID [Suspect]
     Active Substance: LEVOTHYROXINE SODIUM
     Indication: HYPOTHYROIDISM
     Dosage: STARTED MANY YEARS BEFORE
     Route: 048
  2. COVID?19 VACCINE NOS. [Concomitant]
     Active Substance: COVID-19 VACCINE NOS
     Indication: COVID-19 IMMUNISATION

REACTIONS (14)
  - Dysphagia [Not Recovered/Not Resolved]
  - Oesophageal dilatation [Unknown]
  - Chest pain [Unknown]
  - Vomiting [Recovered/Resolved]
  - Pneumonia aspiration [Unknown]
  - Malnutrition [Unknown]
  - Hypoacusis [Recovering/Resolving]
  - Weight decreased [Unknown]
  - Dental caries [Not Recovered/Not Resolved]
  - Dry eye [Not Recovered/Not Resolved]
  - Dry mouth [Not Recovered/Not Resolved]
  - Speech disorder [Not Recovered/Not Resolved]
  - Hypophagia [Unknown]
  - Dementia Alzheimer^s type [Unknown]

NARRATIVE: CASE EVENT DATE: 2020
